FAERS Safety Report 25787512 (Version 2)
Quarter: 2025Q4

REPORT INFORMATION
  Report Type: Spontaneous
  Country: US (occurrence: US)
  Receive Date: 20250910
  Receipt Date: 20251222
  Transmission Date: 20260117
  Serious: Yes (Death, Hospitalization, Other)
  Sender: INCYTE
  Company Number: US-INCYTE CORPORATION-2025IN009844

PATIENT
  Age: 75 Year

DRUGS (10)
  1. JAKAFI [Suspect]
     Active Substance: RUXOLITINIB
     Indication: Product used for unknown indication
     Dosage: 20 MILLIGRAM, QD
     Route: 061
  2. DUPIXENT [Suspect]
     Active Substance: DUPILUMAB
     Indication: Asthma
     Dosage: 300 MILLIGRAM, QOW
  3. AMIODARONE [Suspect]
     Active Substance: AMIODARONE
     Indication: Product used for unknown indication
     Dosage: UNK
     Route: 065
  4. ELIQUIS [Concomitant]
     Active Substance: APIXABAN
     Indication: Product used for unknown indication
     Dosage: UNK
     Route: 065
  5. ALDACTONE [Concomitant]
     Active Substance: SPIRONOLACTONE
     Indication: Product used for unknown indication
     Dosage: UNK
     Route: 065
  6. OXYGEN [Concomitant]
     Active Substance: OXYGEN
     Indication: Product used for unknown indication
     Dosage: UNK
     Route: 065
  7. PHENYLEPHRINE [Concomitant]
     Active Substance: PHENYLEPHRINE
     Indication: Product used for unknown indication
     Dosage: UNK
     Route: 065
  8. BUMETANIDE [Concomitant]
     Active Substance: BUMETANIDE
     Indication: Product used for unknown indication
     Dosage: UNK
     Route: 065
  9. METOLAZONE [Concomitant]
     Active Substance: METOLAZONE
     Indication: Product used for unknown indication
     Dosage: UNK
     Route: 065
  10. TOPROL XL [Concomitant]
     Active Substance: METOPROLOL SUCCINATE
     Indication: Product used for unknown indication
     Dosage: UNK
     Route: 065

REACTIONS (45)
  - Cardiogenic shock [Fatal]
  - Septic shock [Fatal]
  - Ischaemic cardiomyopathy [Fatal]
  - Disseminated intravascular coagulation [Fatal]
  - Ischaemic hepatitis [Fatal]
  - Acute kidney injury [Fatal]
  - Immunosuppression [Fatal]
  - Coronary artery disease [Fatal]
  - Chronic left ventricular failure [Fatal]
  - Renal impairment [Unknown]
  - Respiratory failure [Unknown]
  - Hypotension [Unknown]
  - Hypertransaminasaemia [Not Recovered/Not Resolved]
  - Myeloproliferative neoplasm [Unknown]
  - Multiple organ dysfunction syndrome [Unknown]
  - Lactic acidosis [Unknown]
  - Hyperbilirubinaemia [Unknown]
  - Pulmonary congestion [Unknown]
  - Cytopenia [Unknown]
  - Congestive hepatopathy [Unknown]
  - Type 2 diabetes mellitus [Unknown]
  - Chronic kidney disease [Unknown]
  - Atrial fibrillation [Unknown]
  - Renal tubular necrosis [Unknown]
  - Ventricular tachycardia [Unknown]
  - Arteriosclerosis coronary artery [Unknown]
  - Hypogammaglobulinaemia [Unknown]
  - Leukocytosis [Unknown]
  - Troponin increased [Unknown]
  - Alkalosis [Unknown]
  - Cardiomegaly [Unknown]
  - Pleural effusion [Unknown]
  - Hepatic function abnormal [Unknown]
  - Infection [Unknown]
  - Hyperuricaemia [Unknown]
  - Janus kinase 2 mutation [Unknown]
  - Diabetic nephropathy [Unknown]
  - Obstructive sleep apnoea syndrome [Unknown]
  - Chronic obstructive pulmonary disease [Unknown]
  - Obesity [Unknown]
  - Aortic valve stenosis [Unknown]
  - Anaemia of chronic disease [Unknown]
  - N-terminal prohormone brain natriuretic peptide increased [Unknown]
  - Procalcitonin increased [Unknown]
  - Candida test positive [Unknown]
